FAERS Safety Report 12720909 (Version 1)
Quarter: 2016Q3

REPORT INFORMATION
  Report Type: Spontaneous
  Country: IT (occurrence: IT)
  Receive Date: 20160907
  Receipt Date: 20160907
  Transmission Date: 20161109
  Serious: Yes (Death)
  Sender: FDA-Public Use
  Company Number: IT-TEVA-688745ACC

PATIENT
  Age: 85 Year
  Sex: Male

DRUGS (1)
  1. TICLOPIDINE HYDROCHLORIDE. [Suspect]
     Active Substance: TICLOPIDINE HYDROCHLORIDE
     Indication: THROMBOSIS PROPHYLAXIS
     Dosage: 1 DOSAGE FORMS DAILY;
     Route: 048
     Dates: start: 20160101, end: 20160620

REACTIONS (3)
  - Sopor [Fatal]
  - Coma [Fatal]
  - Cerebral haemorrhage [Fatal]

NARRATIVE: CASE EVENT DATE: 20160621
